FAERS Safety Report 6268048-2 (Version None)
Quarter: 2009Q3

REPORT INFORMATION
  Report Type: 
  Country: None (occurrence: None)
  Receive Date: 20090713
  Receipt Date: 20090630
  Transmission Date: 20100115
  Serious: No
  Sender: FDA-Public Use
  Company Number: 2009-199753-NL

PATIENT
  Age: 47 Year
  Sex: Female

DRUGS (4)
  1. ROCURONIUM BROMIDE [Suspect]
     Indication: ANAESTHETIC PREMEDICATION
     Dosage: 50 MG ONCE; INTRAVENOUS NOS
     Route: 042
     Dates: start: 20090604, end: 20090604
  2. PROPOFOL [Concomitant]
  3. EFEDRIN [Concomitant]
  4. FENTANYL-100 [Concomitant]

REACTIONS (1)
  - URTICARIA [None]
